FAERS Safety Report 21468881 (Version 1)
Quarter: 2022Q4

REPORT INFORMATION
  Report Type: Other
  Country: US (occurrence: None)
  Receive Date: 20221018
  Receipt Date: 20221018
  Transmission Date: 20230112
  Serious: No
  Sender: FDA-Public Use
  Company Number: US-ROCHE-3199944

PATIENT
  Age: 47 Year
  Sex: Female

DRUGS (6)
  1. OCREVUS [Suspect]
     Active Substance: OCRELIZUMAB
     Indication: Relapsing multiple sclerosis
     Dosage: 300 MG SINGLE-USE VIAL
     Route: 042
  2. OXYBUTYNIN [Concomitant]
     Active Substance: OXYBUTYNIN
  3. TRIMETHOPRIM [Concomitant]
     Active Substance: TRIMETHOPRIM
  4. NORCO [Concomitant]
     Active Substance: ACETAMINOPHEN\HYDROCODONE BITARTRATE
  5. NITROFURANTOIN [Concomitant]
     Active Substance: NITROFURANTOIN
  6. MODAFINIL [Concomitant]
     Active Substance: MODAFINIL

REACTIONS (5)
  - Bedridden [Unknown]
  - Asthenia [Unknown]
  - COVID-19 [Unknown]
  - Visual impairment [Unknown]
  - Urinary incontinence [Unknown]
